FAERS Safety Report 19603113 (Version 2)
Quarter: 2021Q3

REPORT INFORMATION
  Report Type: Spontaneous
  Country: CN (occurrence: CN)
  Receive Date: 20210723
  Receipt Date: 20210820
  Transmission Date: 20211014
  Serious: Yes (Life-Threatening, Other)
  Sender: FDA-Public Use
  Company Number: CN-AMGEN-CHNSP2021111734

PATIENT
  Age: 30 Year
  Sex: Male

DRUGS (2)
  1. GRAN [Suspect]
     Active Substance: FILGRASTIM
     Indication: HAEMATOPOIETIC STEM CELL MOBILISATION
     Dosage: UNK
     Route: 065
     Dates: start: 20210712, end: 20210716
  2. GRAN [Suspect]
     Active Substance: FILGRASTIM
     Dosage: 300 UG, BID
     Route: 058
     Dates: start: 20210712, end: 20210715

REACTIONS (3)
  - Off label use [Unknown]
  - Bone pain [Recovered/Resolved with Sequelae]
  - Splenic rupture [Recovered/Resolved with Sequelae]

NARRATIVE: CASE EVENT DATE: 20210716
